FAERS Safety Report 23843395 (Version 1)
Quarter: 2024Q2

REPORT INFORMATION
  Report Type: Spontaneous
  Country: DE (occurrence: DE)
  Receive Date: 20240510
  Receipt Date: 20240510
  Transmission Date: 20240716
  Serious: Yes (Congenital Anomaly, Other)
  Sender: FDA-Public Use
  Company Number: None

PATIENT
  Sex: Female

DRUGS (5)
  1. QUETIAPINE [Suspect]
     Active Substance: QUETIAPINE
     Indication: Product used for unknown indication
     Dosage: MOTHER DOSE: 350 MG/D, 22-DEC-2022 TO 14-FEB-2023 FOR 54 DAYS.
     Route: 064
  2. ASPIRIN [Concomitant]
     Active Substance: ASPIRIN
     Indication: Product used for unknown indication
     Dosage: MOTHER DOSE: 100 (MG/D), 25-JAN-2023 TO 14-FEB-2023 FOR 20 DAYS.
     Route: 064
  3. CYTOTEC [Concomitant]
     Active Substance: MISOPROSTOL
     Indication: Product used for unknown indication
     Dosage: MOTHER DOSE: 18-MAY-2023 TO 18-MAY-2023 FOR 0 DAY.
     Route: 064
  4. MIFEPRISTONE [Concomitant]
     Active Substance: MIFEPRISTONE
     Indication: Product used for unknown indication
     Dosage: MOTHER DOSE: 18-MAY-2023 TO 18-MAY-2023 FOR 0 DAYS.
     Route: 064
  5. PROGESTERONE [Concomitant]
     Active Substance: PROGESTERONE
     Indication: Product used for unknown indication
     Dosage: MOTHER DOSE: 200 MG/D (0-0-1), 08-FEB-2023 TO 14-FEB-2023 FOR 6 DAYS.
     Route: 064

REACTIONS (2)
  - Foetal exposure during pregnancy [Unknown]
  - Congenital multiplex arthrogryposis [Not Recovered/Not Resolved]
